FAERS Safety Report 13779672 (Version 1)
Quarter: 2017Q3

REPORT INFORMATION
  Report Type: Spontaneous
  Country: FR (occurrence: FR)
  Receive Date: 20170722
  Receipt Date: 20170722
  Transmission Date: 20171127
  Serious: Yes (Life-Threatening)
  Sender: FDA-Public Use
  Company Number: FR-009507513-1707FRA006791

PATIENT
  Age: 61 Year
  Sex: Male

DRUGS (4)
  1. POLARAMINE [Suspect]
     Active Substance: DEXCHLORPHENIRAMINE MALEATE
     Dosage: (1 VIAL) AND 120 MG
     Dates: start: 2017
  2. HYDROCORTISONE. [Suspect]
     Active Substance: HYDROCORTISONE
     Indication: PROPHYLAXIS
     Dosage: 100 MG, SINGLE INTAKE
     Route: 042
     Dates: start: 20170616, end: 20170616
  3. POLARAMINE [Suspect]
     Active Substance: DEXCHLORPHENIRAMINE MALEATE
     Indication: PROPHYLAXIS
     Dosage: 5 MG, SINGLE INTAKE
     Route: 042
     Dates: start: 20170616, end: 20170616
  4. ERBITUX [Suspect]
     Active Substance: CETUXIMAB
     Indication: NEOPLASM MALIGNANT
     Dosage: 800 MG, SINGLE INTAKE,A SLOWED FLOW WHITHIN 3 HOURS
     Route: 042
     Dates: start: 20170616, end: 20170616

REACTIONS (5)
  - Anaphylactic shock [Recovered/Resolved]
  - Cardio-respiratory arrest [Recovering/Resolving]
  - Hypotension [Recovered/Resolved]
  - Chills [Recovered/Resolved]
  - Erythema [Recovered/Resolved]

NARRATIVE: CASE EVENT DATE: 20170616
